FAERS Safety Report 25640418 (Version 4)
Quarter: 2025Q4

REPORT INFORMATION
  Report Type: Spontaneous
  Country: None (occurrence: EU)
  Receive Date: 20250804
  Receipt Date: 20251113
  Transmission Date: 20260119
  Serious: Yes (Hospitalization, Other)
  Sender: ORGANON
  Company Number: EU-ORGANON-O2507FRA003091

PATIENT
  Sex: Male
  Weight: 70 kg

DRUGS (8)
  1. LIPTRUZET [Suspect]
     Active Substance: ATORVASTATIN CALCIUM\EZETIMIBE
     Dosage: 1 DOSAGE FORM, QD (IN THE EVEING)
  2. EZETIMIBE [Suspect]
     Active Substance: EZETIMIBE
     Dosage: 1 DOSAGE FORM, QD (IN THE EVENING)
  3. NICOTINE [Suspect]
     Active Substance: NICOTINE
     Dosage: 1 DOSAGE FORM, QD (IN THE MORNING) (14MG/24H)
  4. KARDEGIC [Suspect]
     Active Substance: ASPIRIN DL-LYSINE
     Dosage: 1 DOSAGE FORM, QD (IN THE MORNING) (POWDER FOR DRINKABLE SOLUTION)
  5. TICAGRELOR [Suspect]
     Active Substance: TICAGRELOR
     Dosage: 1 DOSAGE FORM, BID (1 TABLET IN MORNING AND 1 TABLET IN EVENING)
  6. ALPRAZOLAM [Concomitant]
     Active Substance: ALPRAZOLAM
     Dosage: UNK
  7. TAHOR [Concomitant]
     Active Substance: ATORVASTATIN CALCIUM
     Indication: Low density lipoprotein
     Dosage: UNK
  8. ATORVASTATIN [Concomitant]
     Active Substance: ATORVASTATIN
     Dosage: UNK

REACTIONS (32)
  - Cardiac arrest [Unknown]
  - Electrocardiogram ST segment abnormal [Unknown]
  - Myositis [Unknown]
  - Myopathy [Unknown]
  - Acute myocardial infarction [Unknown]
  - Rheumatic disorder [Unknown]
  - Myalgia [Not Recovered/Not Resolved]
  - Fatigue [Unknown]
  - Dysphagia [Unknown]
  - Rhabdomyolysis [Unknown]
  - Acute coronary syndrome [Unknown]
  - Psoriatic arthropathy [Unknown]
  - Asthenia [Unknown]
  - Depression [Unknown]
  - Drug intolerance [Unknown]
  - Blood creatine phosphokinase increased [Unknown]
  - Hypoaesthesia [Unknown]
  - Paraesthesia [Unknown]
  - Arthralgia [Unknown]
  - Pustular psoriasis [Unknown]
  - Stenosis [Unknown]
  - Arterial occlusive disease [Unknown]
  - Chest pain [Unknown]
  - Angioplasty [Unknown]
  - Dyspnoea exertional [Unknown]
  - Skin lesion [Unknown]
  - Claustrophobia [Unknown]
  - Pruritus [Unknown]
  - Pain [Unknown]
  - Psoriasis [Unknown]
  - Back pain [Unknown]
  - Hyperuricaemia [Unknown]

NARRATIVE: CASE EVENT DATE: 20240101
